FAERS Safety Report 14195271 (Version 2)
Quarter: 2018Q1

REPORT INFORMATION
  Report Type: Spontaneous
  Country: IT (occurrence: IT)
  Receive Date: 20171116
  Receipt Date: 20180308
  Transmission Date: 20180508
  Serious: Yes (Hospitalization, Other)
  Sender: FDA-Public Use
  Company Number: IT-009507513-1708ITA005495

PATIENT
  Age: 70 Year
  Sex: Female
  Weight: 70 kg

DRUGS (2)
  1. FOSAVANCE [Suspect]
     Active Substance: ALENDRONATE SODIUM\CHOLECALCIFEROL
     Dosage: 1 DF, QW (STRENGTH: 70 MG/70 MCG)
     Route: 048
     Dates: start: 19970101, end: 20170806
  2. FOSAVANCE [Suspect]
     Active Substance: ALENDRONATE SODIUM\CHOLECALCIFEROL
     Indication: OSTEOPOROSIS
     Dosage: 1 TABLET (70 MG/5600 IU), WEEKLY (ALSO REPORTED AS 70 MG, QW; 70MG/2800IU TABLETS)
     Route: 048
     Dates: start: 2006, end: 20170806

REACTIONS (9)
  - Fracture [Not Recovered/Not Resolved]
  - Anaemia postoperative [Unknown]
  - Gait disturbance [Unknown]
  - Radius fracture [Unknown]
  - Tibia fracture [Unknown]
  - Atypical femur fracture [Unknown]
  - Bone lesion [Unknown]
  - Fall [Unknown]
  - Foot fracture [Unknown]

NARRATIVE: CASE EVENT DATE: 2006
